FAERS Safety Report 9400389 (Version 1)
Quarter: 2013Q3

REPORT INFORMATION
  Report Type: Spontaneous
  Country: GB (occurrence: GB)
  Receive Date: 20130715
  Receipt Date: 20130715
  Transmission Date: 20140515
  Serious: Yes (Hospitalization)
  Sender: FDA-Public Use
  Company Number: GB-TEVA-417102ISR

PATIENT
  Age: 55 Year
  Sex: Female

DRUGS (12)
  1. VINCRISTINE [Suspect]
     Indication: B-CELL LYMPHOMA
     Route: 042
     Dates: start: 20130123
  2. MONOCLONAL ANTIBODIES [Suspect]
     Indication: B-CELL LYMPHOMA
     Dosage: 4MG/KG
     Route: 042
     Dates: start: 20130123
  3. CYCLOPHOSPHAMIDE [Suspect]
     Indication: B-CELL LYMPHOMA
     Route: 042
     Dates: start: 20130123
  4. PREDNISONE [Concomitant]
     Indication: B-CELL LYMPHOMA
     Route: 065
     Dates: start: 20130123
  5. MORPHINE SULPHATE [Concomitant]
     Indication: ABDOMINAL PAIN LOWER
  6. MACROGOL [Concomitant]
     Indication: CONSTIPATION
  7. SENOKOT [Concomitant]
     Indication: CONSTIPATION
  8. ORAMORPH [Concomitant]
     Indication: ABDOMINAL PAIN LOWER
  9. PREGABALIN [Concomitant]
     Indication: ABDOMINAL PAIN LOWER
  10. CHLORPHENIRAMINE MALEATE [Concomitant]
     Indication: PREMEDICATION
     Dates: start: 20130123
  11. PARACETAMOL [Concomitant]
     Indication: PREMEDICATION
     Dates: start: 20130123
  12. DALTEPARIN SODIUM [Concomitant]
     Indication: PULMONARY EMBOLISM
     Dates: start: 20130308

REACTIONS (1)
  - Sepsis [Recovering/Resolving]
